FAERS Safety Report 5045537-X (Version None)
Quarter: 2006Q2

REPORT INFORMATION
  Report Type: 
  Country: None (occurrence: None)
  Receive Date: 20060601
  Receipt Date: 20060203
  Transmission Date: 20061013
  Serious: No
  Sender: FDA-Public Use
  Company Number: 2006-BP-01315BP

PATIENT

DRUGS (2)
  1. SPIRIVA [Suspect]
     Indication: CHRONIC OBSTRUCTIVE PULMONARY DISEASE
     Dosage: NR (18 MCG)
  2. SPIRIVA [Suspect]
     Indication: EMPHYSEMA
     Dosage: NR (18 MCG)

REACTIONS (1)
  - DRUG INEFFECTIVE [None]
